FAERS Safety Report 13726049 (Version 1)
Quarter: 2017Q3

REPORT INFORMATION
  Report Type: Spontaneous
  Country: GB (occurrence: GB)
  Receive Date: 20170706
  Receipt Date: 20170706
  Transmission Date: 20171127
  Serious: Yes (Other)
  Sender: FDA-Public Use
  Company Number: GB-BAYER-2017-124341

PATIENT
  Age: 12 Year
  Sex: Male

DRUGS (3)
  1. KOGENATE [Suspect]
     Active Substance: ANTIHEMOPHILIC FACTOR, HUMAN RECOMBINANT
     Indication: HAEMOPHILIA
     Dosage: 1000 IU, UNK
  2. EMLA [Concomitant]
     Active Substance: LIDOCAINE\PRILOCAINE
  3. KOGENATE [Suspect]
     Active Substance: ANTIHEMOPHILIC FACTOR, HUMAN RECOMBINANT
     Indication: HAEMOPHILIA
     Dosage: 2000 IU, 3 TMES A WEEK PROPHYLACTIC, AND 2000IU ON DEMAND
     Dates: start: 201202

REACTIONS (1)
  - Vein collapse [None]
